FAERS Safety Report 6275787-6 (Version None)
Quarter: 2009Q3

REPORT INFORMATION
  Report Type: 
  Country: None (occurrence: None)
  Receive Date: 20090721
  Receipt Date: 20090714
  Transmission Date: 20100115
  Serious: Yes (Other)
  Sender: FDA-Public Use
  Company Number: US-B.I. PHARMACEUTICALS,INC./RIDGEFIELD-2009-BP-08372BP

PATIENT
  Sex: Female

DRUGS (7)
  1. DULCOLAX [Suspect]
     Dates: end: 20090424
  2. REBIF [Suspect]
     Indication: MULTIPLE SCLEROSIS
     Route: 058
     Dates: start: 20080305, end: 20090413
  3. CYMBALTA [Suspect]
     Route: 048
     Dates: end: 20090424
  4. GABAPENTIN [Suspect]
     Route: 048
     Dates: end: 20090424
  5. SYNTHROID [Suspect]
     Route: 048
     Dates: end: 20090424
  6. AMBIEN [Suspect]
     Route: 048
     Dates: end: 20090424
  7. IBUPROFEN [Suspect]
     Dates: end: 20090424

REACTIONS (5)
  - AUTOIMMUNE HEPATITIS [None]
  - FATIGUE [None]
  - HEPATIC NECROSIS [None]
  - PRURITUS [None]
  - TRANSAMINASES INCREASED [None]
